FAERS Safety Report 8840363 (Version 3)
Quarter: 2013Q1

REPORT INFORMATION
  Report Type: Spontaneous
  Country: DK (occurrence: GB)
  Receive Date: 20121015
  Receipt Date: 20130117
  Transmission Date: 20140127
  Serious: Yes (Other)
  Sender: FDA-Public Use
  Company Number: GB-FRI-1000039405

PATIENT
  Sex: Male

DRUGS (6)
  1. CITALOPRAM [Suspect]
     Indication: DEPRESSION
     Dosage: 10 MG
     Route: 048
     Dates: start: 20120613, end: 20120627
  2. DABIGATRAN ETEXILATE [Concomitant]
     Dosage: 300 MG
     Route: 048
     Dates: start: 2011
  3. RAMIPRIL [Concomitant]
     Indication: HYPERTENSION
     Dosage: 5 MG
     Route: 048
     Dates: start: 20110914, end: 20120613
  4. TAMSULOSIN [Concomitant]
     Dosage: 400 MCG
     Route: 048
     Dates: start: 201105
  5. OMEPRAZOLE [Concomitant]
     Indication: PROPHYLAXIS
     Dosage: 20 MG
     Route: 048
     Dates: start: 20120613
  6. LOSARTAN [Concomitant]
     Indication: HYPERTENSION
     Dosage: 100 MG
     Route: 048
     Dates: start: 20120613

REACTIONS (2)
  - Diplopia [Recovered/Resolved]
  - Impaired driving ability [Recovered/Resolved]
